FAERS Safety Report 8229004-8 (Version None)
Quarter: 2012Q1

REPORT INFORMATION
  Report Type: 
  Country: None (occurrence: None)
  Receive Date: 20120322
  Receipt Date: 20120316
  Transmission Date: 20120608
  Serious: Yes (Hospitalization)
  Sender: FDA-Public Use
  Company Number: FR-PFIZER INC-2012053154

PATIENT
  Age: 72 Year
  Sex: Male

DRUGS (6)
  1. DEPO-MEDROL [Concomitant]
     Indication: LYMPHOMA
     Dosage: 40 MG, CYCLIC
     Dates: start: 20111031
  2. CYTARABINE [Suspect]
     Indication: LYMPHOMA
     Dosage: 40 MG, CYCLIC
     Route: 037
     Dates: start: 20111031
  3. METHOTREXATE [Suspect]
     Indication: LYMPHOMA
     Dosage: 15 MG, CYCLIC
     Route: 037
     Dates: start: 20111031
  4. ALLOPURINOL [Concomitant]
     Indication: LYMPHOMA
     Dosage: UNK
     Dates: start: 20111031, end: 20111226
  5. LEVACT [Suspect]
     Indication: LYMPHOMA
     Dosage: 180 MG, CYCLIC
     Route: 042
     Dates: start: 20111031, end: 20120124
  6. MABTHERA [Suspect]
     Indication: LYMPHOMA
     Dosage: 750 MG, CYCLIC
     Dates: start: 20111031

REACTIONS (2)
  - DERMATITIS EXFOLIATIVE [None]
  - SKIN EXFOLIATION [None]
